FAERS Safety Report 4463295-4 (Version None)
Quarter: 2004Q3

REPORT INFORMATION
  Report Type: 
  Country: None (occurrence: None)
  Receive Date: 20040930
  Receipt Date: 20040708
  Transmission Date: 20050211
  Serious: Yes (Hospitalization)
  Sender: FDA-Public Use
  Company Number: US-BRISTOL-MYERS SQUIBB COMPANY-12635892

PATIENT
  Sex: Male

DRUGS (7)
  1. REYATAZ [Suspect]
     Indication: HIV TEST POSITIVE
     Route: 048
     Dates: start: 20040702, end: 20040702
  2. CLARINEX [Concomitant]
  3. ROBITUSSIN [Concomitant]
  4. VANCOMYCIN [Concomitant]
  5. SUDAFED S.A. [Concomitant]
  6. VIREAD [Concomitant]
  7. LEVAQUIN [Concomitant]

REACTIONS (1)
  - CARDIAC ARREST [None]
